FAERS Safety Report 7625856-0 (Version None)
Quarter: 2011Q3

REPORT INFORMATION
  Report Type: 
  Country: None (occurrence: None)
  Receive Date: 20110721
  Receipt Date: 20110711
  Transmission Date: 20111222
  Serious: Yes (Death)
  Sender: FDA-Public Use
  Company Number: DE-JNJFOC-20110705811

PATIENT

DRUGS (2)
  1. XARELTO [Suspect]
     Indication: PROSTHESIS IMPLANTATION
     Route: 048
  2. XARELTO [Suspect]
     Indication: EMBOLISM VENOUS
     Route: 048

REACTIONS (1)
  - PULMONARY EMBOLISM [None]
